FAERS Safety Report 5556781-7 (Version None)
Quarter: 2007Q4

REPORT INFORMATION
  Report Type: 
  Country: None (occurrence: None)
  Receive Date: 20071130
  Receipt Date: 20070918
  Transmission Date: 20080405
  Serious: No
  Sender: FDA-Public Use
  Company Number: 2007PV028707

PATIENT
  Age: 59 Year
  Sex: Female
  Weight: 114.3 kg

DRUGS (6)
  1. EXENATIDE(EXENATIDE) PEN,DISPOSABLE [Suspect]
     Indication: WEIGHT CONTROL
     Dosage: 5 UG, 2/D, SUBCUTANEOUS, 10 UG, 2/D, SUBCUTANEOUS, 10 UG, DAILY (I/D), SUBCUTANEOUS
     Route: 058
     Dates: start: 20060101, end: 20060101
  2. EXENATIDE(EXENATIDE) PEN,DISPOSABLE [Suspect]
     Indication: WEIGHT CONTROL
     Dosage: 5 UG, 2/D, SUBCUTANEOUS, 10 UG, 2/D, SUBCUTANEOUS, 10 UG, DAILY (I/D), SUBCUTANEOUS
     Route: 058
     Dates: start: 20060101, end: 20070801
  3. EXENATIDE(EXENATIDE) PEN,DISPOSABLE [Suspect]
     Indication: WEIGHT CONTROL
     Dosage: 5 UG, 2/D, SUBCUTANEOUS, 10 UG, 2/D, SUBCUTANEOUS, 10 UG, DAILY (I/D), SUBCUTANEOUS
     Route: 058
     Dates: start: 20070801
  4. INDOCIN [Concomitant]
  5. METFORMIN HCL [Concomitant]
  6. DIOVAN (HYDROCHLOROTHIAZIDE, VALSARTAN) [Concomitant]

REACTIONS (7)
  - ABDOMINAL DISTENSION [None]
  - ANOREXIA [None]
  - BACK PAIN [None]
  - INTERVERTEBRAL DISC COMPRESSION [None]
  - NAUSEA [None]
  - SWELLING [None]
  - WEIGHT DECREASED [None]
